FAERS Safety Report 6693301-8 (Version None)
Quarter: 2010Q2

REPORT INFORMATION
  Report Type: 
  Country: None (occurrence: None)
  Receive Date: 20100422
  Receipt Date: 20090203
  Transmission Date: 20101027
  Serious: Yes (Death, Other)
  Sender: FDA-Public Use
  Company Number: US-AMGEN-QUU405807

PATIENT
  Sex: Female

DRUGS (5)
  1. NPLATE [Suspect]
     Indication: IDIOPATHIC THROMBOCYTOPENIC PURPURA
     Dates: start: 20080904, end: 20081114
  2. DANAZOL [Concomitant]
  3. VINCRISTINE [Concomitant]
  4. IMURAN [Concomitant]
  5. RITUXIMAB [Concomitant]
     Dates: start: 20070726

REACTIONS (2)
  - DRUG INEFFECTIVE [None]
  - SEPSIS [None]
